FAERS Safety Report 10728022 (Version 3)
Quarter: 2015Q3

REPORT INFORMATION
  Report Type: Spontaneous
  Country: US (occurrence: US)
  Receive Date: 20150121
  Receipt Date: 20150702
  Transmission Date: 20151125
  Serious: Yes (Hospitalization, Other)
  Sender: FDA-Public Use
  Company Number: US-009507513-1012USA02292

PATIENT
  Sex: Female

DRUGS (6)
  1. FOSAMAX [Suspect]
     Active Substance: ALENDRONATE SODIUM
     Indication: BONE DENSITY DECREASED
     Dosage: 70 MG, QW
     Route: 048
     Dates: start: 20010529, end: 2008
  2. FOSAMAX [Suspect]
     Active Substance: ALENDRONATE SODIUM
     Dosage: 70 MG, Q2 WEEKS
     Route: 048
     Dates: start: 20031021, end: 200506
  3. ALENDRONATE SODIUM. [Suspect]
     Active Substance: ALENDRONATE SODIUM
     Indication: BONE DENSITY DECREASED
     Dosage: 70 MG, UNK
     Route: 048
     Dates: start: 2008
  4. FOSAMAX [Suspect]
     Active Substance: ALENDRONATE SODIUM
     Dosage: 10 MG, QD
     Route: 048
     Dates: start: 19990405, end: 200105
  5. FOSAMAX [Suspect]
     Active Substance: ALENDRONATE SODIUM
     Dosage: 10 MG, BID
     Route: 048
     Dates: start: 20000324
  6. FOSAMAX [Suspect]
     Active Substance: ALENDRONATE SODIUM
     Indication: BONE DENSITY DECREASED
     Dosage: UNK
     Route: 048
     Dates: start: 199904, end: 200808

REACTIONS (24)
  - Back pain [Unknown]
  - Gallbladder disorder [Unknown]
  - Tonsillar disorder [Unknown]
  - Osteopenia [Unknown]
  - Scoliosis [Unknown]
  - Foot deformity [Unknown]
  - Prescribed overdose [Unknown]
  - Underdose [Unknown]
  - Intervertebral disc protrusion [Unknown]
  - Hypertension [Unknown]
  - Ligament rupture [Unknown]
  - Ulcer [Unknown]
  - Femur fracture [Recovering/Resolving]
  - Intervertebral disc degeneration [Unknown]
  - Spondylitis [Unknown]
  - Hyperlipidaemia [Unknown]
  - Appendix disorder [Unknown]
  - Drug ineffective [Unknown]
  - Open reduction of fracture [Unknown]
  - Spinal compression fracture [Unknown]
  - Lumbar spinal stenosis [Unknown]
  - Osteoarthritis [Unknown]
  - Arteriosclerosis [Unknown]
  - Gastrooesophageal reflux disease [Unknown]

NARRATIVE: CASE EVENT DATE: 20000324
